FAERS Safety Report 8428116-3 (Version None)
Quarter: 2012Q2

REPORT INFORMATION
  Report Type: 
  Country: None (occurrence: None)
  Receive Date: 20120611
  Receipt Date: 20120604
  Transmission Date: 20120825
  Serious: Yes (Other)
  Sender: FDA-Public Use
  Company Number: CA-ROCHE-1013609

PATIENT
  Sex: Female

DRUGS (11)
  1. XOLAIR [Suspect]
     Indication: ASTHMA
     Route: 058
     Dates: start: 20090422
  2. ALVESCO [Concomitant]
  3. TRAZODONE HCL [Concomitant]
  4. FLUTICASONE FUROATE [Concomitant]
  5. SINGULAIR [Concomitant]
  6. ADVAIR DISKUS 100/50 [Concomitant]
  7. THEOPHYLLINE [Concomitant]
  8. ESCITALOPRAM [Concomitant]
  9. OMEPRAZOLE [Concomitant]
  10. ALENDRONATE SODIUM [Concomitant]
  11. ALBUTEROL [Concomitant]

REACTIONS (5)
  - PAIN IN EXTREMITY [None]
  - SKIN DISCOLOURATION [None]
  - SWELLING [None]
  - OEDEMA [None]
  - LIGAMENT SPRAIN [None]
